FAERS Safety Report 5368296-X (Version None)
Quarter: 2007Q2

REPORT INFORMATION
  Report Type: 
  Country: None (occurrence: None)
  Receive Date: 20070620
  Receipt Date: 20070608
  Transmission Date: 20071010
  Serious: Yes (Other)
  Sender: FDA-Public Use
  Company Number: 2007JP002646

PATIENT
  Age: 77 Year
  Sex: Female

DRUGS (2)
  1. FUNGUARD (MICAFUNGIN) INJECTION [Suspect]
     Dosage: 100 MG, IV DRIP
     Route: 041
  2. AMPICILLIN SODIUM W/ SULBACTAM SODIUM (AMPICILLIN SODIUM W/ SULBACTAM [Suspect]
     Dosage: 6 G, IV DRIP
     Route: 041
     Dates: start: 20070605, end: 20070607

REACTIONS (1)
  - RENAL DISORDER [None]
